FAERS Safety Report 4406338-6 (Version None)
Quarter: 2004Q3

REPORT INFORMATION
  Report Type: 
  Country: None (occurrence: None)
  Receive Date: 20040723
  Receipt Date: 20030625
  Transmission Date: 20050211
  Serious: No
  Sender: FDA-Public Use
  Company Number: US-GLAXOSMITHKLINE-A0413977A

PATIENT
  Age: 70 Year
  Sex: Female

DRUGS (6)
  1. AVANDIA [Suspect]
     Route: 048
     Dates: start: 20020901
  2. INSULIN [Concomitant]
  3. NPH INSULIN [Concomitant]
  4. CAPTOPRIL [Concomitant]
  5. ASPIRIN [Concomitant]
  6. NORPRAMIN [Concomitant]

REACTIONS (3)
  - FLUID RETENTION [None]
  - JOINT SWELLING [None]
  - WEIGHT INCREASED [None]
